FAERS Safety Report 10177612 (Version 2)
Quarter: 2014Q2

REPORT INFORMATION
  Report Type: Spontaneous
  Country: CA (occurrence: CA)
  Receive Date: 20140516
  Receipt Date: 20140516
  Transmission Date: 20141212
  Serious: Yes (Other)
  Sender: FDA-Public Use
  Company Number: CA-PFIZER INC-2014134818

PATIENT
  Sex: Male

DRUGS (1)
  1. LIPITOR [Suspect]
     Dosage: UNK
     Dates: start: 2011, end: 201309

REACTIONS (10)
  - Arthralgia [Unknown]
  - Asthenia [Unknown]
  - Myalgia [Unknown]
  - Decreased appetite [Unknown]
  - Weight decreased [Unknown]
  - Hypoaesthesia [Unknown]
  - Paraesthesia [Unknown]
  - Confusional state [Unknown]
  - Muscle spasms [Unknown]
  - Throat irritation [Unknown]
